FAERS Safety Report 7178955-4 (Version None)
Quarter: 2010Q4

REPORT INFORMATION
  Report Type: 
  Country: None (occurrence: None)
  Receive Date: 20101217
  Receipt Date: 20101217
  Transmission Date: 20110411
  Serious: Yes (Other)
  Sender: FDA-Public Use
  Company Number: None

PATIENT
  Age: 24 Year
  Sex: Female
  Weight: 54.4316 kg

DRUGS (1)
  1. GIANVI 3 MG/ 0.02 TEVA [Suspect]
     Indication: CONTRACEPTION
     Dates: start: 20101123, end: 20101216

REACTIONS (1)
  - PRODUCT SUBSTITUTION ISSUE [None]
